FAERS Safety Report 4350674-9 (Version None)
Quarter: 2004Q2

REPORT INFORMATION
  Report Type: 
  Country: None (occurrence: None)
  Receive Date: 20040428
  Receipt Date: 20040416
  Transmission Date: 20050107
  Serious: Yes (Hospitalization)
  Sender: FDA-Public Use
  Company Number: HQWYE491716APR04

PATIENT
  Age: 84 Year
  Sex: Female

DRUGS (16)
  1. CORDARONE [Suspect]
     Indication: ARRHYTHMIA
     Dosage: SEE IMAGE
     Route: 048
     Dates: start: 20040219, end: 20040220
  2. CORDARONE [Suspect]
     Indication: ATRIAL FIBRILLATION
     Dosage: SEE IMAGE
     Route: 048
     Dates: start: 20040219, end: 20040220
  3. CORDARONE [Suspect]
     Indication: ARRHYTHMIA
     Dosage: SEE IMAGE
     Route: 048
     Dates: start: 20040221, end: 20040301
  4. CORDARONE [Suspect]
     Indication: ATRIAL FIBRILLATION
     Dosage: SEE IMAGE
     Route: 048
     Dates: start: 20040221, end: 20040301
  5. EUPRESSYL (URAPIDIL) [Concomitant]
  6. LASIX [Concomitant]
  7. COVERSYL (PERINDOPRIL) [Concomitant]
  8. AMLODIPINE BESYLATE [Concomitant]
  9. PLAVIX [Concomitant]
  10. ZOCOR [Concomitant]
  11. OMEPRAZOLE [Concomitant]
  12. CACIT (CALCIUM CARBONATE/CITRIC ACID) [Concomitant]
  13. FOSAMAX [Concomitant]
  14. PREDNISONE TAB [Concomitant]
  15. ORBENIN (CLOXACILLIN SODIUM) [Concomitant]
  16. INSULIN [Concomitant]

REACTIONS (4)
  - CONDITION AGGRAVATED [None]
  - HYPERTHYROIDISM [None]
  - PROTEIN URINE PRESENT [None]
  - RENAL FAILURE [None]
